FAERS Safety Report 9055434 (Version 1)
Quarter: 2013Q1

REPORT INFORMATION
  Report Type: Spontaneous
  Country: JP (occurrence: JP)
  Receive Date: 20130206
  Receipt Date: 20130206
  Transmission Date: 20140127
  Serious: Yes (Other)
  Sender: FDA-Public Use
  Company Number: PHHY2013JP008190

PATIENT
  Sex: Female

DRUGS (1)
  1. COMTAN [Suspect]
     Indication: PARKINSON^S DISEASE
     Dosage: 400 MG, DAILY (FOUR DOSES PER DAY)
     Route: 048

REACTIONS (5)
  - Blood pressure increased [Unknown]
  - Movement disorder [Unknown]
  - Chills [Unknown]
  - Dyskinesia [Unknown]
  - Tremor [Unknown]
